FAERS Safety Report 8838670 (Version 1)
Quarter: 2012Q4

REPORT INFORMATION
  Report Type: 
  Country: AR (occurrence: AR)
  Receive Date: 20121012
  Receipt Date: 20121012
  Transmission Date: 20130627
  Serious: Yes (Hospitalization)
  Sender: FDA-Public Use
  Company Number: AR-B.I. PHARMACEUTICALS,INC./RIDGEFIELD-2012-RA-00295RA

PATIENT
  Age: 79 Year
  Sex: Male
  Weight: 80 kg

DRUGS (5)
  1. PRADAXA [Suspect]
     Indication: CEREBROVASCULAR ACCIDENT PROPHYLAXIS
     Dosage: 300 mg
     Route: 048
     Dates: start: 201112, end: 201112
  2. PRADAXA [Suspect]
     Dosage: 300 mg
     Route: 048
     Dates: start: 201204, end: 201204
  3. PRADAXA [Suspect]
     Dosage: 300 mg
     Route: 048
     Dates: start: 201208
  4. ACENOCUMAROL [Concomitant]
     Indication: CEREBROVASCULAR ACCIDENT PROPHYLAXIS
     Route: 048
     Dates: start: 2011, end: 201112
  5. ACENOCUMAROL [Concomitant]
     Route: 048
     Dates: start: 201204, end: 201208

REACTIONS (3)
  - Diarrhoea [Recovered/Resolved]
  - Hypokalaemia [Recovered/Resolved]
  - Diarrhoea [Recovered/Resolved]
